FAERS Safety Report 17086237 (Version 1)
Quarter: 2019Q4

REPORT INFORMATION
  Report Type: Spontaneous
  Country: US (occurrence: US)
  Receive Date: 20191128
  Receipt Date: 20191128
  Transmission Date: 20200122
  Serious: No
  Sender: FDA-Public Use
  Company Number: US-UCBSA-2018044579

PATIENT
  Age: 76 Year
  Sex: Male

DRUGS (3)
  1. BRIVIACT [Suspect]
     Active Substance: BRIVARACETAM
     Indication: EPILEPSY
     Dosage: 50 MG, 2X/DAY (BID)
     Dates: start: 20180801
  2. GABAPENTIN. [Concomitant]
     Active Substance: GABAPENTIN
     Indication: MYALGIA
     Dosage: 600 MG, 3X/DAY (TID)
  3. METFORMIN [Concomitant]
     Active Substance: METFORMIN HYDROCHLORIDE
     Indication: DIABETES MELLITUS
     Dosage: 500 MG, ONCE DAILY (QD)

REACTIONS (1)
  - Rash vesicular [Not Recovered/Not Resolved]

NARRATIVE: CASE EVENT DATE: 20180815
